FAERS Safety Report 7067559-X (Version None)
Quarter: 2010Q4

REPORT INFORMATION
  Report Type: 
  Country: None (occurrence: None)
  Receive Date: 20101028
  Receipt Date: 20101022
  Transmission Date: 20110411
  Serious: Yes (Hospitalization)
  Sender: FDA-Public Use
  Company Number: US-CEPHALON-2010005599

PATIENT
  Sex: Female
  Weight: 96 kg

DRUGS (6)
  1. NUVIGIL [Suspect]
     Indication: SOMNOLENCE
     Route: 048
     Dates: start: 20100501, end: 20100930
  2. SUBOXONE [Concomitant]
     Dates: start: 20091020, end: 20100930
  3. CLONAPINE [Concomitant]
     Dates: start: 20070101, end: 20100930
  4. XANAX [Concomitant]
     Dates: start: 20100501, end: 20100930
  5. CYMBALTA [Concomitant]
     Dates: start: 20100501, end: 20100930
  6. IMITREX [Concomitant]
     Dates: start: 20100501

REACTIONS (3)
  - DEPRESSION [None]
  - DRUG INEFFECTIVE FOR UNAPPROVED INDICATION [None]
  - SUICIDE ATTEMPT [None]
